FAERS Safety Report 8142534-2 (Version None)
Quarter: 2012Q1

REPORT INFORMATION
  Report Type: 
  Country: None (occurrence: None)
  Receive Date: 20120103
  Receipt Date: 20110831
  Transmission Date: 20120608
  Serious: No
  Sender: FDA-Public Use
  Company Number: AE-2011-001097

PATIENT
  Age: 56 Year
  Sex: Female
  Weight: 70.3075 kg

DRUGS (4)
  1. RIBASPHERE [Concomitant]
  2. LISINOPRIL [Concomitant]
  3. INCIVEK [Suspect]
     Dosage: (750 MG, EVERY 7-9 HOURS), ORAL
     Route: 048
     Dates: start: 20110819
  4. PEGASYS [Concomitant]

REACTIONS (1)
  - RASH PRURITIC [None]
